FAERS Safety Report 7491429-6 (Version None)
Quarter: 2011Q2

REPORT INFORMATION
  Report Type: 
  Country: None (occurrence: None)
  Receive Date: 20110519
  Receipt Date: 20110509
  Transmission Date: 20111010
  Serious: Yes (Other)
  Sender: FDA-Public Use
  Company Number: PHHY2011US34490

PATIENT
  Sex: Male

DRUGS (3)
  1. GILENYA [Suspect]
     Indication: MULTIPLE SCLEROSIS
     Dosage: 1 DF, QD
     Route: 048
     Dates: start: 20110405, end: 20110427
  2. HYDROCHLOROTHIAZIDE [Concomitant]
     Dosage: 25 MG, UNK
  3. LISINOPRIL [Concomitant]
     Dosage: 40 MG, UNK

REACTIONS (4)
  - STAPHYLOCOCCAL INFECTION [None]
  - RASH PUSTULAR [None]
  - ACNE [None]
  - ERYTHEMA [None]
